FAERS Safety Report 14577246 (Version 1)
Quarter: 2018Q1

REPORT INFORMATION
  Report Type: Spontaneous
  Country: US (occurrence: US)
  Receive Date: 20180226
  Receipt Date: 20180226
  Transmission Date: 20180509
  Serious: No
  Sender: FDA-Public Use
  Company Number: None

PATIENT
  Age: 24 Year
  Sex: Female
  Weight: 63.5 kg

DRUGS (7)
  1. CALCIUM [Concomitant]
     Active Substance: CALCIUM
  2. VITAMIN D [Concomitant]
     Active Substance: CHOLECALCIFEROL
  3. XYREM [Concomitant]
     Active Substance: SODIUM OXYBATE
  4. BACLOFEN. [Concomitant]
     Active Substance: BACLOFEN
  5. PARAGARD T 380A [Suspect]
     Active Substance: COPPER
     Dates: start: 20170821, end: 20180108
  6. PAXIL [Concomitant]
     Active Substance: PAROXETINE HYDROCHLORIDE
  7. IRON [Concomitant]
     Active Substance: IRON

REACTIONS (10)
  - Panic attack [None]
  - Fear [None]
  - Sinusitis [None]
  - Fatigue [None]
  - Suicidal ideation [None]
  - Crying [None]
  - Loss of personal independence in daily activities [None]
  - Feelings of worthlessness [None]
  - Anxiety [None]
  - Depression [None]

NARRATIVE: CASE EVENT DATE: 20170822
